FAERS Safety Report 8564388-2 (Version None)
Quarter: 2012Q3

REPORT INFORMATION
  Report Type: 
  Country: None (occurrence: None)
  Receive Date: 20120803
  Receipt Date: 20120727
  Transmission Date: 20120928
  Serious: Yes (Congenital Anomaly)
  Sender: FDA-Public Use
  Company Number: FR-ASTELLAS-2012EU005433

PATIENT
  Sex: Male
  Weight: 3.2 kg

DRUGS (2)
  1. PROGRAF [Suspect]
     Indication: FOETAL EXPOSURE DURING PREGNANCY
     Dosage: 4 MG, UNKNOWN/D
     Route: 015
  2. AZATHIOPRINE [Suspect]
     Indication: FOETAL EXPOSURE DURING PREGNANCY
     Dosage: 75 MG, UID/QD
     Route: 015

REACTIONS (2)
  - RENAL HYPOPLASIA [None]
  - RENAL FAILURE [None]
